FAERS Safety Report 24925996 (Version 2)
Quarter: 2025Q1

REPORT INFORMATION
  Report Type: Report from Study
  Country: PK (occurrence: PK)
  Receive Date: 20250205
  Receipt Date: 20250328
  Transmission Date: 20250408
  Serious: Yes (Death)
  Sender: NOVARTIS
  Company Number: PK-002147023-NVSC2025PK018314

PATIENT
  Age: 71 Year
  Sex: Male

DRUGS (2)
  1. SECUKINUMAB [Suspect]
     Active Substance: SECUKINUMAB
     Indication: Psoriatic arthropathy
     Dosage: 150 MG, WITHOUT LOADING DOSES 1 INJ OF FRAIZERON 150MG ONCE MONTHLY
     Route: 058
     Dates: start: 20241228
  2. SECUKINUMAB [Suspect]
     Active Substance: SECUKINUMAB
     Route: 065

REACTIONS (2)
  - Death [Fatal]
  - Incorrect dose administered [Unknown]

NARRATIVE: CASE EVENT DATE: 20250101
